FAERS Safety Report 10996523 (Version 3)
Quarter: 2015Q2

REPORT INFORMATION
  Report Type: Spontaneous
  Country: EG (occurrence: EG)
  Receive Date: 20150408
  Receipt Date: 20150423
  Transmission Date: 20150821
  Serious: Yes (Death, Other)
  Sender: FDA-Public Use
  Company Number: EG-AMGEN-EGYSP2015032388

PATIENT
  Age: 49 Year
  Sex: Female

DRUGS (1)
  1. PROLIA [Suspect]
     Active Substance: DENOSUMAB
     Indication: OSTEOPOROSIS
     Dosage: 60 MG, Q6MO
     Route: 058
     Dates: start: 201203

REACTIONS (2)
  - Hepatic failure [Fatal]
  - Ascites [Unknown]

NARRATIVE: CASE EVENT DATE: 201208
